FAERS Safety Report 6672979-9 (Version None)
Quarter: 2010Q2

REPORT INFORMATION
  Report Type: 
  Country: None (occurrence: None)
  Receive Date: 20100408
  Receipt Date: 20100407
  Transmission Date: 20101027
  Serious: Yes (Other)
  Sender: FDA-Public Use
  Company Number: A0853940A

PATIENT

DRUGS (1)
  1. VERAMYST [Suspect]
     Route: 045

REACTIONS (1)
  - ANOSMIA [None]
